FAERS Safety Report 19846551 (Version 1)
Quarter: 2021Q3

REPORT INFORMATION
  Report Type: Spontaneous
  Country: US (occurrence: US)
  Receive Date: 20210917
  Receipt Date: 20210917
  Transmission Date: 20211014
  Serious: Yes (Death)
  Sender: FDA-Public Use
  Company Number: None

PATIENT
  Age: 48 Year
  Sex: Male
  Weight: 86.5 kg

DRUGS (2)
  1. TOCILIZUMAB. [Suspect]
     Active Substance: TOCILIZUMAB
     Indication: COVID-19
     Dosage: ?          OTHER FREQUENCY:ONCE;?
     Route: 042
     Dates: start: 20210825, end: 20210825
  2. TOCILIZUMAB. [Suspect]
     Active Substance: TOCILIZUMAB
     Indication: COVID-19
     Dosage: ?          OTHER FREQUENCY:ONCE;?
     Route: 042
     Dates: start: 20210825, end: 20210825

REACTIONS (6)
  - Pulseless electrical activity [None]
  - Aspartate aminotransferase increased [None]
  - Cardiac arrest [None]
  - Pulmonary embolism [None]
  - Alanine aminotransferase increased [None]
  - Bradycardia [None]

NARRATIVE: CASE EVENT DATE: 20210910
